FAERS Safety Report 24957754 (Version 1)
Quarter: 2025Q1

REPORT INFORMATION
  Report Type: Spontaneous
  Country: JP (occurrence: JP)
  Receive Date: 20250212
  Receipt Date: 20250212
  Transmission Date: 20250409
  Serious: Yes (Other)
  Sender: BOEHRINGER INGELHEIM
  Company Number: JP-BoehringerIngelheim-2025-BI-007134

PATIENT
  Age: 67 Year
  Sex: Female

DRUGS (4)
  1. AFATINIB [Suspect]
     Active Substance: AFATINIB
     Indication: Lung adenocarcinoma stage IV
  2. OSIMERTINIB [Concomitant]
     Active Substance: OSIMERTINIB
     Indication: Lung adenocarcinoma stage IV
  3. PREDNISOLONE [Concomitant]
     Active Substance: PREDNISOLONE
     Indication: Interstitial lung disease
  4. PREDNISOLONE [Concomitant]
     Active Substance: PREDNISOLONE

REACTIONS (6)
  - Malignant neoplasm progression [Recovering/Resolving]
  - Metastases to meninges [Recovering/Resolving]
  - Metastases to lung [Recovering/Resolving]
  - Metastases to central nervous system [Recovering/Resolving]
  - Therapy partial responder [Not Recovered/Not Resolved]
  - Acquired gene mutation [Unknown]
